FAERS Safety Report 21652572 (Version 1)
Quarter: 2022Q4

REPORT INFORMATION
  Report Type: Spontaneous
  Country: US (occurrence: US)
  Receive Date: 20221128
  Receipt Date: 20221128
  Transmission Date: 20230112
  Serious: Yes (Other)
  Sender: FDA-Public Use
  Company Number: US-PFIZER INC-PV202200110448

PATIENT
  Age: 73 Year
  Sex: Male

DRUGS (1)
  1. TIKOSYN [Suspect]
     Active Substance: DOFETILIDE
     Dosage: 1 DF, 2X/DAY

REACTIONS (2)
  - Cardiac failure congestive [Unknown]
  - Lung neoplasm malignant [Unknown]
